FAERS Safety Report 5699241-5 (Version None)
Quarter: 2008Q2

REPORT INFORMATION
  Report Type: 
  Country: None (occurrence: None)
  Receive Date: 20080407
  Receipt Date: 20080407
  Transmission Date: 20081010
  Serious: Yes (Hospitalization)
  Sender: FDA-Public Use
  Company Number: None

PATIENT
  Sex: Female
  Weight: 81.6 kg

DRUGS (14)
  1. CYCLOPHOSPHAMIDE [Suspect]
     Dosage: 1402 MG
  2. DOXIL [Suspect]
     Dosage: 74 MG
  3. NEULASTA [Suspect]
     Dosage: 6 MG
  4. PREDNISONE [Suspect]
     Dosage: 350 MG
  5. RITUXIMAB (MOAB C2B8 ANTI CD20 CHIMERIC) [Suspect]
     Dosage: 701 MG
  6. VINCRISTINE SULFATE [Suspect]
     Dosage: 2 MG
  7. ATENOLOL [Concomitant]
  8. AVANDIA [Concomitant]
  9. DIOVAN [Concomitant]
  10. INSULIN [Concomitant]
  11. NEXIUM [Concomitant]
  12. SULFASALAZINE [Concomitant]
  13. TRIAMTERENE AND HYDROCHLOROTHIAZIDE [Concomitant]
  14. ZOLOFT [Concomitant]

REACTIONS (3)
  - CATHETER RELATED INFECTION [None]
  - OEDEMA PERIPHERAL [None]
  - STAPHYLOCOCCAL INFECTION [None]
